FAERS Safety Report 10790193 (Version 1)
Quarter: 2015Q1

REPORT INFORMATION
  Report Type: Spontaneous
  Country: US (occurrence: US)
  Receive Date: 20150212
  Receipt Date: 20150212
  Transmission Date: 20150721
  Serious: No
  Sender: FDA-Public Use
  Company Number: US-GLAXOSMITHKLINE-A1069446A

PATIENT

DRUGS (6)
  1. SYNTHROID [Concomitant]
     Active Substance: LEVOTHYROXINE SODIUM
  2. VENTOLIN [Suspect]
     Active Substance: ALBUTEROL SULFATE
     Indication: EMPHYSEMA
  3. ATENOLOL. [Concomitant]
     Active Substance: ATENOLOL
  4. VENTOLIN [Suspect]
     Active Substance: ALBUTEROL SULFATE
     Indication: BRONCHITIS CHRONIC
     Route: 055
     Dates: start: 201404, end: 201404
  5. DIOVAN [Concomitant]
     Active Substance: VALSARTAN
  6. BUMETANIDE. [Concomitant]
     Active Substance: BUMETANIDE

REACTIONS (1)
  - Cough [Not Recovered/Not Resolved]

NARRATIVE: CASE EVENT DATE: 201404
